FAERS Safety Report 21529426 (Version 6)
Quarter: 2022Q4

REPORT INFORMATION
  Report Type: Spontaneous
  Country: SE (occurrence: SE)
  Receive Date: 20221031
  Receipt Date: 20221230
  Transmission Date: 20230113
  Serious: Yes (Other)
  Sender: FDA-Public Use
  Company Number: SE-PFIZER INC-202201244604

PATIENT
  Age: 65 Year
  Sex: Male
  Weight: 94 kg

DRUGS (2)
  1. FRAGMIN [Suspect]
     Active Substance: DALTEPARIN SODIUM
     Dosage: UNK UNK, 1X/DAY
     Route: 048
     Dates: start: 202011, end: 202105
  2. NEBIDO [TESTOSTERONE] [Concomitant]
     Dosage: EVERY 14TH WEEK

REACTIONS (11)
  - Incorrect route of product administration [Unknown]
  - Poisoning deliberate [Recovered/Resolved]
  - Diabetes mellitus inadequate control [Not Recovered/Not Resolved]
  - Abdominal pain upper [Recovered/Resolved]
  - Headache [Recovered/Resolved]
  - Contusion [Recovered/Resolved]
  - Blood pressure abnormal [Not Recovered/Not Resolved]
  - Nausea [Not Recovered/Not Resolved]
  - Abdominal pain lower [Unknown]
  - Gastrointestinal inflammation [Unknown]
  - Hypoglycaemia [Unknown]

NARRATIVE: CASE EVENT DATE: 20201101
